FAERS Safety Report 7769752-7 (Version None)
Quarter: 2011Q3

REPORT INFORMATION
  Report Type: 
  Country: None (occurrence: None)
  Receive Date: 20110922
  Receipt Date: 20101028
  Transmission Date: 20111222
  Serious: Yes (Other)
  Sender: FDA-Public Use
  Company Number: US-ASTRAZENECA-2010SE38501

PATIENT
  Age: 633 Month
  Sex: Male
  Weight: 76.2 kg

DRUGS (10)
  1. SEROQUEL [Suspect]
     Route: 048
     Dates: end: 20100701
  2. SEROQUEL [Suspect]
     Indication: DEPRESSION
     Route: 048
     Dates: start: 20080101
  3. CELEBREX [Concomitant]
     Indication: ARTHRITIS
  4. QUINAPRIL HCL [Concomitant]
     Indication: HYPERTENSION
  5. NEURONTIN [Concomitant]
  6. SEROQUEL [Suspect]
     Indication: ANXIETY
     Route: 048
     Dates: start: 20080101
  7. SEROQUEL [Suspect]
     Route: 048
  8. SEROQUEL [Suspect]
     Route: 048
     Dates: end: 20100701
  9. SEROQUEL [Suspect]
     Route: 048
  10. FLEXERIL [Concomitant]
     Indication: OSTEOARTHRITIS

REACTIONS (7)
  - WEIGHT DECREASED [None]
  - EMOTIONAL DISTRESS [None]
  - CONVULSION [None]
  - TONGUE BITING [None]
  - ANXIETY [None]
  - VOMITING [None]
  - DRUG DOSE OMISSION [None]
